FAERS Safety Report 5808064-5 (Version None)
Quarter: 2008Q3

REPORT INFORMATION
  Report Type: 
  Country: None (occurrence: None)
  Receive Date: 20080708
  Receipt Date: 20080624
  Transmission Date: 20090109
  Serious: Yes (Hospitalization)
  Sender: FDA-Public Use
  Company Number: IDA-00094

PATIENT
  Age: 29 Year
  Sex: Female

DRUGS (3)
  1. PROPRANOLOL [Suspect]
     Dosage: 2240 MG ONCE PO, FORMULATION: CAPS_CR
     Route: 048
     Dates: start: 20080229, end: 20080229
  2. LYSANXIA: (PRAZEPAM) STRENGTH(S): 1 DF [Suspect]
     Dosage: 8 DF PO, FORMULATION: TABL
     Route: 048
     Dates: start: 20080229, end: 20080229
  3. PAROXETINE HCL [Concomitant]

REACTIONS (2)
  - HYPOGLYCAEMIA [None]
  - MULTIPLE DRUG OVERDOSE INTENTIONAL [None]
